FAERS Safety Report 21411626 (Version 2)
Quarter: 2023Q4

REPORT INFORMATION
  Report Type: Spontaneous
  Country: US (occurrence: US)
  Receive Date: 20221005
  Receipt Date: 20231006
  Transmission Date: 20240109
  Serious: No
  Sender: FDA-Public Use
  Company Number: US-JUBILANT CADISTA PHARMACEUTICALS INC.-2022JUB00173

PATIENT
  Sex: Male

DRUGS (15)
  1. PREDNISONE [Suspect]
     Active Substance: PREDNISONE
     Indication: Osteoporosis
     Dosage: 10 MG
     Route: 065
  2. PREDNISONE [Suspect]
     Active Substance: PREDNISONE
     Indication: Polymyalgia rheumatica
     Dosage: 10 MG
     Route: 065
  3. PREDNISONE [Suspect]
     Active Substance: PREDNISONE
     Dosage: 5 MG
     Route: 065
     Dates: start: 2021, end: 202112
  4. PREDNISONE [Suspect]
     Active Substance: PREDNISONE
     Dosage: 1-2 MG, 1X/DAY
     Route: 065
     Dates: start: 202112, end: 20211231
  5. ENZALUTAMIDE [Suspect]
     Active Substance: ENZALUTAMIDE
     Indication: Prostate cancer
     Dosage: 40-80 MG, 1X/DAY
     Route: 048
     Dates: start: 2018
  6. ENZALUTAMIDE [Suspect]
     Active Substance: ENZALUTAMIDE
     Dosage: 80 MG, 1X/DAY
     Route: 048
     Dates: start: 201912
  7. ENZALUTAMIDE [Suspect]
     Active Substance: ENZALUTAMIDE
     Dosage: 40 MG, EVERY 48 HOURS
     Route: 048
     Dates: start: 202006
  8. ENZALUTAMIDE [Suspect]
     Active Substance: ENZALUTAMIDE
     Dosage: 80 MG (2 TABS) ONE DAY AND 40 MG (1 TAB) OTHER DAY
     Route: 048
     Dates: start: 202012
  9. ENZALUTAMIDE [Suspect]
     Active Substance: ENZALUTAMIDE
     Dosage: 40 MG, EVERY 48 HOURS
     Route: 048
  10. ENZALUTAMIDE [Suspect]
     Active Substance: ENZALUTAMIDE
     Dosage: 40-80 MG, 1X/DAY
     Route: 048
     Dates: start: 202108
  11. ENZALUTAMIDE [Suspect]
     Active Substance: ENZALUTAMIDE
     Dosage: 80 MG, 1X/DAY
     Route: 048
     Dates: start: 202112
  12. ENZALUTAMIDE [Suspect]
     Active Substance: ENZALUTAMIDE
     Dosage: 160 MG, 1X/DAY
     Route: 048
     Dates: start: 20220613
  13. ENZALUTAMIDE [Suspect]
     Active Substance: ENZALUTAMIDE
     Dosage: 80 MG, 1X/DAY
     Route: 048
  14. IBANDRONATE SODIUM [Concomitant]
     Active Substance: IBANDRONATE SODIUM
     Indication: Osteoporosis
     Dosage: 150 MG
  15. IBANDRONATE SODIUM [Concomitant]
     Active Substance: IBANDRONATE SODIUM
     Dosage: 150 MG, 1X/MONTH
     Dates: start: 202111

REACTIONS (2)
  - Bone loss [Unknown]
  - Off label use [Recovered/Resolved]
